FAERS Safety Report 13952602 (Version 2)
Quarter: 2017Q3

REPORT INFORMATION
  Report Type: Spontaneous
  Country: JP (occurrence: JP)
  Receive Date: 20170911
  Receipt Date: 20170923
  Transmission Date: 20171128
  Serious: Yes (Other)
  Sender: FDA-Public Use
  Company Number: JP-009507513-1709JPN000122J

PATIENT
  Age: 37 Year
  Sex: Male

DRUGS (1)
  1. DESALEX TABLETS 5MG [Suspect]
     Active Substance: DESLORATADINE
     Indication: ECZEMA
     Dosage: 5 MG, QD
     Route: 048
     Dates: start: 20170831, end: 20170831

REACTIONS (2)
  - Vomiting [Unknown]
  - Epiglottitis [Recovered/Resolved]

NARRATIVE: CASE EVENT DATE: 20170831
